FAERS Safety Report 7576963-2 (Version None)
Quarter: 2011Q2

REPORT INFORMATION
  Report Type: 
  Country: None (occurrence: None)
  Receive Date: 20110628
  Receipt Date: 20101022
  Transmission Date: 20111010
  Serious: No
  Sender: FDA-Public Use
  Company Number: US-BAYER-201040386NA

PATIENT
  Sex: Female

DRUGS (3)
  1. VITAMIN TAB [Concomitant]
     Indication: LEUKAEMIA
     Dosage: UNK
  2. GLEEVEC [Concomitant]
     Indication: LEUKAEMIA
     Dosage: UNK
  3. MIRENA [Suspect]
     Dosage: 20 ?G/D, CONT
     Route: 015

REACTIONS (4)
  - NAUSEA [None]
  - MALAISE [None]
  - HEADACHE [None]
  - DIZZINESS [None]
